FAERS Safety Report 9617493 (Version 3)
Quarter: 2014Q4

REPORT INFORMATION
  Report Type: Spontaneous
  Country: US (occurrence: US)
  Receive Date: 20131011
  Receipt Date: 20141202
  Transmission Date: 20150529
  Serious: Yes (Hospitalization, Other)
  Sender: FDA-Public Use
  Company Number: US-GLAXOSMITHKLINE-A1044593A

PATIENT
  Sex: Female

DRUGS (18)
  1. ADVAIR HFA [Suspect]
     Active Substance: FLUTICASONE PROPIONATE\SALMETEROL XINAFOATE
     Indication: ASPERGILLUS INFECTION
     Dosage: 500/50 MCG THEN REDUCED TO 250/50 MCG 1 PUFF TWICE DAY  FOR 169 WEEKS THEN INCREASED BACK UP TO[...]
     Route: 055
     Dates: start: 2006
  2. CLOTRIMAZOLE LOZENGES [Concomitant]
  3. NIFEDIPINE. [Suspect]
     Active Substance: NIFEDIPINE
     Indication: BLOOD PRESSURE
     Route: 065
  4. ANTIBIOTIC [Concomitant]
     Active Substance: UNSPECIFIED INGREDIENT
  5. LISINOPRIL. [Concomitant]
     Active Substance: LISINOPRIL
  6. DILTIAZEM [Concomitant]
     Active Substance: DILTIAZEM
  7. SIMVASTATIN. [Concomitant]
     Active Substance: SIMVASTATIN
  8. CLONAZEPAM. [Concomitant]
     Active Substance: CLONAZEPAM
  9. ADVAIR HFA [Suspect]
     Active Substance: FLUTICASONE PROPIONATE\SALMETEROL XINAFOATE
     Dosage: 500/50 MCG, UNK
     Dates: start: 2006
  10. OXYGEN. [Concomitant]
     Active Substance: OXYGEN
  11. UNKNOWN [Concomitant]
     Active Substance: UNSPECIFIED INGREDIENT
  12. BETA BLOCKER [Suspect]
     Active Substance: UNSPECIFIED INGREDIENT
     Indication: BLOOD PRESSURE
     Route: 065
  13. AZITHROMYCIN [Concomitant]
     Active Substance: AZITHROMYCIN ANHYDROUS
  14. OMEPRAZOLE. [Concomitant]
     Active Substance: OMEPRAZOLE
  15. SPIRIVA [Concomitant]
     Active Substance: TIOTROPIUM BROMIDE MONOHYDRATE
  16. SPORANOX [Concomitant]
     Active Substance: ITRACONAZOLE\SODIUM CHLORIDE
  17. PREDNISONE. [Concomitant]
     Active Substance: PREDNISONE
  18. POTASSIUM [Concomitant]
     Active Substance: POTASSIUM

REACTIONS (21)
  - Oxygen saturation decreased [Not Recovered/Not Resolved]
  - Blood sodium decreased [Recovering/Resolving]
  - Blood potassium decreased [Recovering/Resolving]
  - Drug administration error [Recovered/Resolved]
  - Cough [Not Recovered/Not Resolved]
  - Weight decreased [Not Recovered/Not Resolved]
  - Oral disorder [Recovering/Resolving]
  - Dyspnoea [Recovering/Resolving]
  - Fatigue [Not Recovered/Not Resolved]
  - Renal impairment [Not Recovered/Not Resolved]
  - Contusion [Not Recovered/Not Resolved]
  - Bronchostenosis [Not Recovered/Not Resolved]
  - Bedridden [Recovering/Resolving]
  - Total lung capacity decreased [Not Recovered/Not Resolved]
  - Food craving [Recovering/Resolving]
  - Oral candidiasis [Recovering/Resolving]
  - Blood glucose increased [Recovering/Resolving]
  - Oesophageal candidiasis [Recovering/Resolving]
  - Dysphonia [Not Recovered/Not Resolved]
  - Hypertension [Recovered/Resolved]
  - Pulmonary function test decreased [Not Recovered/Not Resolved]

NARRATIVE: CASE EVENT DATE: 2006
